FAERS Safety Report 14444992 (Version 2)
Quarter: 2018Q4

REPORT INFORMATION
  Report Type: Spontaneous
  Country: US (occurrence: US)
  Receive Date: 20180126
  Receipt Date: 20181002
  Transmission Date: 20190204
  Serious: No
  Sender: FDA-Public Use
  Company Number: US-PFIZER INC-2018028145

PATIENT
  Age: 62 Year
  Sex: Male
  Weight: 106.5 kg

DRUGS (3)
  1. FLECTOR [Suspect]
     Active Substance: DICLOFENAC EPOLAMINE
     Indication: BACK PAIN
     Dosage: 1 DF, UNK (1 PATCH TO LOWER BACK/HIP)
     Route: 061
     Dates: start: 201711
  2. FLECTOR [Suspect]
     Active Substance: DICLOFENAC EPOLAMINE
     Indication: PAIN
  3. FLECTOR [Suspect]
     Active Substance: DICLOFENAC EPOLAMINE
     Indication: NEURALGIA
     Dosage: 2 DF, DAILY [TWO PATCHES PER DAY]
     Dates: start: 201711

REACTIONS (1)
  - Application site rash [Not Recovered/Not Resolved]

NARRATIVE: CASE EVENT DATE: 2017
